FAERS Safety Report 7515357-2 (Version None)
Quarter: 2011Q2

REPORT INFORMATION
  Report Type: 
  Country: None (occurrence: None)
  Receive Date: 20110601
  Receipt Date: 20100601
  Transmission Date: 20111010
  Serious: No
  Sender: FDA-Public Use
  Company Number: US-PFIZER INC-2010019200

PATIENT
  Sex: Male
  Weight: 95 kg

DRUGS (3)
  1. CHANTIX [Suspect]
     Indication: SMOKING CESSATION THERAPY
     Dosage: UNK
     Route: 048
     Dates: start: 20100101
  2. EXCEDRIN (MIGRAINE) [Concomitant]
     Dosage: AS NEEDED
     Route: 048
  3. LEXAPRO [Concomitant]
     Dosage: 10 MG, DAILY

REACTIONS (1)
  - BLISTER [None]
